FAERS Safety Report 4742610-8 (Version None)
Quarter: 2005Q3

REPORT INFORMATION
  Report Type: 
  Country: None (occurrence: None)
  Receive Date: 20050810
  Receipt Date: 20050810
  Transmission Date: 20060218
  Serious: Yes (Hospitalization)
  Sender: FDA-Public Use
  Company Number: None

PATIENT
  Age: 81 Year
  Sex: Male
  Weight: 72.5755 kg

DRUGS (12)
  1. VALSARTAN [Suspect]
     Indication: CARDIAC FAILURE CONGESTIVE
  2. FUROSEMIDE [Suspect]
     Indication: CARDIAC FAILURE CONGESTIVE
  3. WARFARIN [Suspect]
     Indication: ATRIAL FIBRILLATION
     Dosage: 3 MG ON MONDAY AND 2MG ALL OTHER DAYS
  4. LASIX [Suspect]
  5. AMIODARONE HCL (GENEVA) [Concomitant]
  6. AMMONIUM LACTATE [Concomitant]
  7. LANOXIN [Concomitant]
  8. FUROSEMIDE [Concomitant]
  9. POTASSIUM CL [Concomitant]
  10. SIMVASTATIN [Concomitant]
  11. VALSARTAN [Concomitant]
  12. COUMADIN [Concomitant]

REACTIONS (3)
  - FALL [None]
  - HAEMATOMA [None]
  - HYPOTENSION [None]
